FAERS Safety Report 13035654 (Version 1)
Quarter: 2016Q4

REPORT INFORMATION
  Report Type: Spontaneous
  Country: NO (occurrence: NO)
  Receive Date: 20161216
  Receipt Date: 20161216
  Transmission Date: 20170207
  Serious: Yes (Other)
  Sender: FDA-Public Use
  Company Number: NO-FRESENIUS KABI-FK201609776

PATIENT
  Age: 63 Year
  Sex: Female

DRUGS (2)
  1. CARBOPLATIN (MANUFACTURER UNKNOWN) [Suspect]
     Active Substance: CARBOPLATIN
     Indication: OVARIAN CANCER
     Route: 051
     Dates: start: 201511, end: 201604
  2. PACLITAXEL (MANUFACTURER UNKNOWN) [Suspect]
     Active Substance: PACLITAXEL
     Indication: OVARIAN CANCER
     Route: 051
     Dates: start: 201511, end: 201604

REACTIONS (1)
  - Basedow^s disease [Recovering/Resolving]

NARRATIVE: CASE EVENT DATE: 201611
